FAERS Safety Report 16259439 (Version 1)
Quarter: 2019Q2

REPORT INFORMATION
  Report Type: Spontaneous
  Country: FR (occurrence: FR)
  Receive Date: 20190501
  Receipt Date: 20190501
  Transmission Date: 20190711
  Serious: Yes (Life-Threatening, Hospitalization)
  Sender: FDA-Public Use
  Company Number: FR-TEVA-2019-FR-1043926

PATIENT
  Age: 83 Year
  Sex: Female

DRUGS (7)
  1. SERESTA [Concomitant]
     Active Substance: OXAZEPAM
  2. RISPERDAL [Concomitant]
     Active Substance: RISPERIDONE
  3. AMOXICILLIN. [Suspect]
     Active Substance: AMOXICILLIN
     Indication: BRONCHITIS
     Route: 048
     Dates: start: 20190319, end: 20190327
  4. REMINYL [Concomitant]
     Active Substance: GALANTAMINE
  5. SEROPLEX [Concomitant]
     Active Substance: ESCITALOPRAM OXALATE
  6. DEPAMIDE [Concomitant]
     Active Substance: VALPROMIDE
  7. OROCAL [Concomitant]

REACTIONS (1)
  - Drug reaction with eosinophilia and systemic symptoms [Recovering/Resolving]

NARRATIVE: CASE EVENT DATE: 20190327
